FAERS Safety Report 19065201 (Version 1)
Quarter: 2021Q1

REPORT INFORMATION
  Report Type: Spontaneous
  Country: US (occurrence: US)
  Receive Date: 20210327
  Receipt Date: 20210327
  Transmission Date: 20210420
  Serious: Yes (Other)
  Sender: FDA-Public Use
  Company Number: US-LUPIN PHARMACEUTICALS INC.-2021-03865

PATIENT
  Age: 32 Year
  Sex: Male

DRUGS (16)
  1. DIPHENHYDRAMINE. [Suspect]
     Active Substance: DIPHENHYDRAMINE
     Indication: PROPHYLAXIS AGAINST PSYCHOMOTOR AGITATION
     Dosage: 50 MILLIGRAM
     Route: 065
  2. CREATINE [Concomitant]
     Active Substance: CREATINE
     Indication: SUPPLEMENTATION THERAPY
     Dosage: 5 GRAM
     Route: 065
  3. OIL OF PEPPERMINT [Concomitant]
     Indication: SUPPLEMENTATION THERAPY
     Dosage: 50 MILLIGRAM
     Route: 065
  4. NIACIN. [Concomitant]
     Active Substance: NIACIN
     Indication: SUPPLEMENTATION THERAPY
     Dosage: 500 MILLIGRAM
     Route: 065
  5. POTASSIUM [Concomitant]
     Active Substance: POTASSIUM
     Indication: SUPPLEMENTATION THERAPY
     Dosage: 99 MILLIGRAM
     Route: 065
  6. HEART HEALTH [Concomitant]
     Indication: SUPPLEMENTATION THERAPY
     Dosage: UNK
     Route: 065
  7. ALLI [Concomitant]
     Active Substance: ORLISTAT
     Indication: SUPPLEMENTATION THERAPY
     Dosage: 60 MILLIGRAM
     Route: 065
  8. INSULIN [Concomitant]
     Active Substance: INSULIN NOS
     Indication: SUPPLEMENTATION THERAPY
     Dosage: UNK
     Route: 065
  9. CLENBUTEROL [Concomitant]
     Active Substance: CLENBUTEROL
     Indication: SUPPLEMENTATION THERAPY
     Dosage: 200 MICROGRAM
     Route: 065
  10. TOREMIFENE [Concomitant]
     Active Substance: TOREMIFENE
     Indication: SUPPLEMENTATION THERAPY
     Dosage: 60 MILLIGRAM
     Route: 065
  11. HALOPERIDOL. [Suspect]
     Active Substance: HALOPERIDOL
     Indication: PROPHYLAXIS AGAINST PSYCHOMOTOR AGITATION
     Dosage: 5 MILLIGRAM
     Route: 065
  12. LORAZEPAM. [Suspect]
     Active Substance: LORAZEPAM
     Indication: PROPHYLAXIS AGAINST PSYCHOMOTOR AGITATION
     Dosage: 2 MILLIGRAM
     Route: 065
  13. MAGNESIUM [Concomitant]
     Active Substance: MAGNESIUM
     Indication: SUPPLEMENTATION THERAPY
     Dosage: 250 MILLIGRAM
     Route: 065
  14. ARACHIDONIC ACID [Concomitant]
     Active Substance: ARACHIDONIC ACID
     Indication: SUPPLEMENTATION THERAPY
     Dosage: 350 MILLIGRAM
     Route: 065
  15. ASTAXANTHIN [Concomitant]
     Active Substance: ASTAXANTHIN
     Indication: SUPPLEMENTATION THERAPY
     Dosage: 6 MILLIGRAM
     Route: 065
  16. T3 [Concomitant]
     Active Substance: LIOTHYRONINE SODIUM
     Indication: SUPPLEMENTATION THERAPY
     Dosage: 200 MICROGRAM
     Route: 065

REACTIONS (1)
  - Drug ineffective [Unknown]
